FAERS Safety Report 6878730-1 (Version None)
Quarter: 2010Q2

REPORT INFORMATION
  Report Type: 
  Country: None (occurrence: None)
  Receive Date: 20100624
  Receipt Date: 20100405
  Transmission Date: 20101027
  Serious: No
  Sender: FDA-Public Use
  Company Number: DKLU1061330

PATIENT
  Age: 0 Year

DRUGS (5)
  1. SABRIL [Suspect]
     Indication: INFANTILE SPASMS
     Dosage: 500 MG MILLIGRAM(S), 2 IN 1 D, ORAL
     Route: 048
     Dates: start: 20100407
  2. ZANTAC [Concomitant]
  3. BACTRIM [Concomitant]
  4. TOPAMAX [Concomitant]
  5. ACTH [Concomitant]

REACTIONS (1)
  - FEEDING DISORDER [None]
